FAERS Safety Report 11284872 (Version 1)
Quarter: 2015Q3

REPORT INFORMATION
  Report Type: Spontaneous
  Country: US (occurrence: US)
  Receive Date: 20150720
  Receipt Date: 20150720
  Transmission Date: 20151125
  Serious: Yes (Hospitalization, Other)
  Sender: FDA-Public Use
  Company Number: US-JNJFOC-20150708811

PATIENT
  Sex: Female

DRUGS (15)
  1. ATORVASTATIN CALCIUM. [Concomitant]
     Active Substance: ATORVASTATIN CALCIUM
     Route: 048
     Dates: start: 20141231
  2. CLONIDINE HYDROCHLORIDE. [Concomitant]
     Active Substance: CLONIDINE HYDROCHLORIDE
     Indication: BLOOD PRESSURE INCREASED
     Dosage: EVERY 4 HOURS AS NEEDED
     Route: 048
  3. LISINOPRIL. [Concomitant]
     Active Substance: LISINOPRIL
     Route: 048
     Dates: start: 20141216
  4. HYDROCORTISONE. [Concomitant]
     Active Substance: HYDROCORTISONE
     Dosage: DOSE: 20 MG??STRENGTH 10MG THREE TIMES DAILY
     Route: 048
     Dates: start: 20141117
  5. TIZANIDINE HYDROCHLORIDE. [Concomitant]
     Active Substance: TIZANIDINE HYDROCHLORIDE
     Route: 048
     Dates: start: 20150513
  6. AMITRIPTYLINE HYDROCHLORIDE. [Concomitant]
     Active Substance: AMITRIPTYLINE HYDROCHLORIDE
     Dosage: STRENGTH: 25 MG??FREQUENCY: BEFORE BED
     Route: 048
     Dates: start: 20140715
  7. OXYCODONE HYDROCHLORIDE. [Concomitant]
     Active Substance: OXYCODONE HYDROCHLORIDE
     Dosage: 10MG -20MG EVERY 4-6 HOURS AS NEEDED.
     Route: 048
     Dates: start: 20150710
  8. PROMETHAZINE HYDROCHLORIDE. [Concomitant]
     Active Substance: PROMETHAZINE HYDROCHLORIDE
     Dosage: EVERY 4-6 HOURS AS NEEDED.
     Route: 048
     Dates: start: 20150513
  9. METOPROLOL [Concomitant]
     Active Substance: METOPROLOL
     Route: 048
     Dates: start: 20150128
  10. INVOKANA [Suspect]
     Active Substance: CANAGLIFLOZIN
     Indication: DIABETES MELLITUS
     Dosage: STARTED ABOUT A YEAR BEFORE THE TIME OF REPORTING.
     Route: 048
     Dates: end: 2015
  11. CALTRATE + VIT D [Concomitant]
     Dosage: DOSE: 600 MG/ 400 IU
     Route: 048
     Dates: start: 20100208
  12. METHADONE HYDROCHLORIDE. [Concomitant]
     Active Substance: METHADONE HYDROCHLORIDE
     Dosage: DOSE: 1.5 (UNITS NOT SPECIFIED)
     Route: 048
     Dates: start: 20150710
  13. PANTOPRAZOLE [Concomitant]
     Active Substance: PANTOPRAZOLE SODIUM
     Route: 048
     Dates: start: 20140530
  14. CLONAPIN [Concomitant]
     Active Substance: CLONAZEPAM
     Route: 048
     Dates: start: 20150310
  15. CARISOPRODOL. [Concomitant]
     Active Substance: CARISOPRODOL
     Route: 048
     Dates: start: 20150710

REACTIONS (3)
  - Sepsis [Unknown]
  - Addison^s disease [Unknown]
  - Pancreatitis acute [Unknown]
